FAERS Safety Report 6702983-3 (Version None)
Quarter: 2010Q2

REPORT INFORMATION
  Report Type: 
  Country: None (occurrence: None)
  Receive Date: 20100429
  Receipt Date: 20100429
  Transmission Date: 20101027
  Serious: Yes (Other)
  Sender: FDA-Public Use
  Company Number: None

PATIENT
  Age: 55 Year
  Sex: Female
  Weight: 90.7194 kg

DRUGS (1)
  1. LOVASTATIN [Suspect]
     Dosage: 40 MG ONE/DAY
     Dates: start: 20080101, end: 20080301

REACTIONS (2)
  - ANXIETY [None]
  - APPARENT DEATH [None]
